FAERS Safety Report 9126113 (Version 1)
Quarter: 2013Q1

REPORT INFORMATION
  Report Type: Report from Study
  Country: US (occurrence: US)
  Receive Date: 20130117
  Receipt Date: 20130117
  Transmission Date: 20140127
  Serious: Yes (Other)
  Sender: FDA-Public Use
  Company Number: US-ABBOTT-13P-163-1034530-00

PATIENT
  Age: 57 Year
  Sex: Female

DRUGS (9)
  1. HUMIRA [Suspect]
     Indication: CROHN^S DISEASE
     Dates: start: 20120918
  2. CYMBALTA [Concomitant]
     Indication: DEPRESSION
  3. NEXIUM [Concomitant]
     Indication: GASTROOESOPHAGEAL REFLUX DISEASE
  4. ENTOCORT [Concomitant]
     Indication: CROHN^S DISEASE
  5. IMITREX [Concomitant]
     Indication: MIGRAINE
  6. MAX AIR [Concomitant]
     Indication: ASTHMA
     Route: 055
  7. TYLENOL [Concomitant]
     Indication: PAIN
  8. METHOTREXATE [Concomitant]
     Indication: PRODUCT USED FOR UNKNOWN INDICATION
     Route: 050
  9. METHOTREXATE [Concomitant]
     Route: 050

REACTIONS (2)
  - Tendonitis [Not Recovered/Not Resolved]
  - Rash [Not Recovered/Not Resolved]
